FAERS Safety Report 8586525-6 (Version None)
Quarter: 2012Q3

REPORT INFORMATION
  Report Type: 
  Country: None (occurrence: None)
  Receive Date: 20120810
  Receipt Date: 20120731
  Transmission Date: 20120928
  Serious: Yes (Other)
  Sender: FDA-Public Use
  Company Number: US-JNJFOC-20120801835

PATIENT
  Sex: Female

DRUGS (3)
  1. REMICADE [Suspect]
     Indication: COLITIS ULCERATIVE
     Route: 042
     Dates: start: 20110901
  2. REMICADE [Suspect]
     Route: 042
     Dates: start: 20120501, end: 20120101
  3. CORTICOSTEROIDS, NOS [Concomitant]

REACTIONS (1)
  - LUPUS-LIKE SYNDROME [None]
